FAERS Safety Report 7400423-2 (Version None)
Quarter: 2011Q2

REPORT INFORMATION
  Report Type: 
  Country: None (occurrence: None)
  Receive Date: 20110407
  Receipt Date: 20110405
  Transmission Date: 20111010
  Serious: Yes (Hospitalization)
  Sender: FDA-Public Use
  Company Number: JP-BRACCO-004689

PATIENT
  Age: 57 Year
  Sex: Female

DRUGS (1)
  1. IOPAMIDOL [Suspect]
     Indication: COMPUTERISED TOMOGRAM
     Route: 042
     Dates: start: 20110323, end: 20110323

REACTIONS (2)
  - PRURITUS [None]
  - ECZEMA [None]
